FAERS Safety Report 10872007 (Version 1)
Quarter: 2015Q1

REPORT INFORMATION
  Report Type: Spontaneous
  Country: US (occurrence: US)
  Receive Date: 20150226
  Receipt Date: 20150226
  Transmission Date: 20150721
  Serious: No
  Sender: FDA-Public Use
  Company Number: US-MYLANLABS-2014S1008098

PATIENT
  Age: 46 Year
  Sex: Female
  Weight: 79.5 kg

DRUGS (6)
  1. FISH OIL [Concomitant]
     Active Substance: FISH OIL
     Dosage: UNK
     Dates: start: 201404
  2. ISOTRETINOIN [Suspect]
     Active Substance: ISOTRETINOIN
     Indication: OFF LABEL USE
     Dosage: 80 MG,BID
     Route: 048
     Dates: end: 201402
  3. VITAMIN E [Concomitant]
     Active Substance: .ALPHA.-TOCOPHEROL
     Dosage: UNK
     Dates: start: 201404
  4. VARENICLINE TARTRATE [Concomitant]
     Active Substance: VARENICLINE TARTRATE
     Dosage: UNK
     Dates: start: 20131121
  5. ALBUTEROL SULFATE. [Concomitant]
     Active Substance: ALBUTEROL SULFATE
     Dosage: .09 MG,UNK
     Dates: start: 20131211
  6. ISOTRETINOIN [Suspect]
     Active Substance: ISOTRETINOIN
     Indication: CUTANEOUS LUPUS ERYTHEMATOSUS
     Dosage: 40 MG,BID
     Route: 048
     Dates: start: 20131001

REACTIONS (14)
  - Scleral discolouration [Not Recovered/Not Resolved]
  - Hypoaesthesia [Not Recovered/Not Resolved]
  - Lip dry [Not Recovered/Not Resolved]
  - Blood triglycerides increased [Not Recovered/Not Resolved]
  - Fall [Not Recovered/Not Resolved]
  - Arthralgia [Not Recovered/Not Resolved]
  - Scar [Not Recovered/Not Resolved]
  - Tachycardia [Not Recovered/Not Resolved]
  - Peripheral swelling [Not Recovered/Not Resolved]
  - Chest pain [Not Recovered/Not Resolved]
  - Rotator cuff syndrome [Not Recovered/Not Resolved]
  - Enthesopathy [Not Recovered/Not Resolved]
  - Muscle injury [Not Recovered/Not Resolved]
  - Alopecia [Not Recovered/Not Resolved]

NARRATIVE: CASE EVENT DATE: 201310
